FAERS Safety Report 6327530-X (Version None)
Quarter: 2009Q3

REPORT INFORMATION
  Report Type: 
  Country: None (occurrence: None)
  Receive Date: 20090825
  Receipt Date: 20090818
  Transmission Date: 20100115
  Serious: Yes (Other)
  Sender: FDA-Public Use
  Company Number: PHEH2009US08601

PATIENT
  Sex: Female

DRUGS (11)
  1. ZOMETA [Suspect]
     Indication: BREAST CANCER METASTATIC
     Dosage: 4 MG, QMO
     Route: 042
     Dates: start: 20070511, end: 20081208
  2. ZOMETA [Suspect]
     Dosage: 3 MG, QMO
     Route: 042
     Dates: start: 20081208
  3. TAXOL [Suspect]
     Dosage: UNK
     Dates: start: 20071101, end: 20080601
  4. NORVASC [Concomitant]
  5. CRESTOR [Concomitant]
  6. SYNTHROID [Concomitant]
  7. XELODA [Concomitant]
  8. GEMCITABINE [Concomitant]
     Dosage: UNK
     Dates: start: 20080701, end: 20080901
  9. TAXOTERE [Concomitant]
     Dosage: UNK
     Dates: start: 20081101
  10. AVASTIN [Concomitant]
     Dosage: UNK
     Dates: start: 20081101
  11. NEUPOGEN [Concomitant]

REACTIONS (18)
  - BLOOD LACTATE DEHYDROGENASE INCREASED [None]
  - BLOOD THYROID STIMULATING HORMONE INCREASED [None]
  - BONE DISORDER [None]
  - FACIAL PARESIS [None]
  - GINGIVAL PAIN [None]
  - GINGIVAL SWELLING [None]
  - HAEMATOCRIT DECREASED [None]
  - HAEMOGLOBIN DECREASED [None]
  - MALIGNANT NEOPLASM PROGRESSION [None]
  - MEAN CELL HAEMOGLOBIN CONCENTRATION DECREASED [None]
  - METASTASES TO BONE [None]
  - METASTASES TO LIVER [None]
  - MUCOSAL INFLAMMATION [None]
  - NAIL TOXICITY [None]
  - NEUROPATHY PERIPHERAL [None]
  - RED BLOOD CELL COUNT DECREASED [None]
  - RED CELL DISTRIBUTION WIDTH INCREASED [None]
  - WHITE BLOOD CELL COUNT DECREASED [None]
